FAERS Safety Report 12136298 (Version 1)
Quarter: 2016Q1

REPORT INFORMATION
  Report Type: Spontaneous
  Country: US (occurrence: None)
  Receive Date: 20160301
  Receipt Date: 20160301
  Transmission Date: 20160526
  Serious: Yes (Other)
  Sender: FDA-Public Use
  Company Number: None

PATIENT
  Age: 91 Year
  Sex: Male
  Weight: 70.31 kg

DRUGS (6)
  1. ZOCOR [Concomitant]
     Active Substance: SIMVASTATIN
  2. HYTRIN [Concomitant]
     Active Substance: TERAZOSIN HYDROCHLORIDE
  3. PROSCAR [Concomitant]
     Active Substance: FINASTERIDE
  4. DOXYCYCLINE. [Suspect]
     Active Substance: DOXYCYCLINE
     Indication: COUGH
     Dosage: 1 PILL TWICE A DAY MORNING EVENING MOUTH?12-30-2016     01-7-2016
     Route: 048
     Dates: end: 20160107
  5. MULTIVITAMIN [Concomitant]
     Active Substance: VITAMINS
  6. ATENOLO [Concomitant]

REACTIONS (3)
  - Weight decreased [None]
  - Headache [None]
  - Decreased appetite [None]

NARRATIVE: CASE EVENT DATE: 20160102
